FAERS Safety Report 4946231-3 (Version None)
Quarter: 2006Q1

REPORT INFORMATION
  Report Type: 
  Country: None (occurrence: None)
  Receive Date: 20060201
  Receipt Date: 20051229
  Transmission Date: 20060701
  Serious: No
  Sender: FDA-Public Use
  Company Number: 2006PV006547

PATIENT
  Age: 79 Year
  Sex: Male

DRUGS (2)
  1. BYETTA [Suspect]
     Indication: DRUG USE FOR UNKNOWN INDICATION
     Dosage: 5 MCG;UNK;SC
     Route: 058
     Dates: start: 20051221
  2. NIASPAN [Concomitant]

REACTIONS (5)
  - BURNING SENSATION [None]
  - FEELING HOT [None]
  - FLUSHING [None]
  - PALPITATIONS [None]
  - PRURITUS [None]
